FAERS Safety Report 9270894 (Version 3)
Quarter: 2014Q4

REPORT INFORMATION
  Report Type: Spontaneous
  Country: JP (occurrence: JP)
  Receive Date: 20130505
  Receipt Date: 20141110
  Transmission Date: 20150529
  Serious: Yes (Other)
  Sender: FDA-Public Use
  Company Number: PHHY2013JP043665

PATIENT
  Age: 36 Year
  Sex: Female

DRUGS (4)
  1. TASIGNA [Suspect]
     Active Substance: NILOTINIB
     Dosage: 300 MG, DAILY
     Route: 048
     Dates: start: 201207
  2. TASIGNA [Suspect]
     Active Substance: NILOTINIB
     Dosage: 450 MG, DAILY
     Route: 048
     Dates: start: 201208
  3. TASIGNA [Suspect]
     Active Substance: NILOTINIB
     Indication: CHRONIC MYELOID LEUKAEMIA
     Dosage: 600 MG, DAILY
     Route: 048
     Dates: start: 20120611, end: 201207
  4. TASIGNA [Suspect]
     Active Substance: NILOTINIB
     Dosage: 600 MG, DAILY
     Route: 048
     Dates: start: 201208

REACTIONS (3)
  - Headache [Recovered/Resolved]
  - Platelet count decreased [Recovered/Resolved]
  - Rash [Recovered/Resolved]

NARRATIVE: CASE EVENT DATE: 201206
